FAERS Safety Report 6935172-8 (Version None)
Quarter: 2010Q3

REPORT INFORMATION
  Report Type: 
  Country: None (occurrence: None)
  Receive Date: 20100822
  Receipt Date: 20100816
  Transmission Date: 20110219
  Serious: Yes (Death, Other)
  Sender: FDA-Public Use
  Company Number: PHHY2010JP51493

PATIENT
  Age: 51 Year
  Sex: Female

DRUGS (3)
  1. SIMULECT [Suspect]
     Indication: LIVER TRANSPLANT
     Dosage: 20 MG, UNK
     Route: 042
  2. TACROLIMUS [Suspect]
     Indication: LIVER TRANSPLANT
  3. CORTICOSTEROIDS [Suspect]

REACTIONS (12)
  - ALANINE AMINOTRANSFERASE INCREASED [None]
  - ASPARTATE AMINOTRANSFERASE INCREASED [None]
  - BLOOD BILIRUBIN INCREASED [None]
  - HAEMATOMA EVACUATION [None]
  - HYPOTENSION [None]
  - INTESTINAL HAEMATOMA [None]
  - LIVER TRANSPLANT REJECTION [None]
  - PHLEBITIS [None]
  - PORTAL VEIN FLOW DECREASED [None]
  - PYREXIA [None]
  - RESPIRATORY FAILURE [None]
  - VENOOCCLUSIVE DISEASE [None]
